FAERS Safety Report 7351313-5 (Version None)
Quarter: 2011Q1

REPORT INFORMATION
  Report Type: 
  Country: None (occurrence: None)
  Receive Date: 20110314
  Receipt Date: 20110228
  Transmission Date: 20110831
  Serious: Yes (Hospitalization, Other)
  Sender: FDA-Public Use
  Company Number: PHHY2010DE63396

PATIENT
  Sex: Male
  Weight: 89 kg

DRUGS (1)
  1. AFINITOR [Suspect]
     Indication: RENAL CELL CARCINOMA
     Dosage: 5 MG, DAILY
     Route: 048
     Dates: start: 20100819

REACTIONS (12)
  - PLEURAL EFFUSION [None]
  - RASH [None]
  - DYSGEUSIA [None]
  - COUGH [None]
  - PYREXIA [None]
  - CACHEXIA [None]
  - CHEST PAIN [None]
  - HYPOTENSION [None]
  - ABDOMINAL PAIN [None]
  - DIARRHOEA [None]
  - FATIGUE [None]
  - DYSPNOEA [None]
